FAERS Safety Report 6241747-4 (Version None)
Quarter: 2009Q2

REPORT INFORMATION
  Report Type: 
  Country: None (occurrence: None)
  Receive Date: 20090623
  Receipt Date: 20061128
  Transmission Date: 20091009
  Serious: Yes (Other)
  Sender: FDA-Public Use
  Company Number: CA-ROCHE-472950

PATIENT
  Age: 38 Year
  Sex: Female

DRUGS (3)
  1. ISOTRETINOIN [Suspect]
     Indication: ACNE
     Route: 065
  2. PREDNISONE [Suspect]
     Indication: PYODERMA GANGRENOSUM
     Route: 065
  3. ALDACTONE [Concomitant]
     Indication: HAIR-AN SYNDROME

REACTIONS (3)
  - AGITATION [None]
  - HYPERGLYCAEMIA [None]
  - PYODERMA GANGRENOSUM [None]
